FAERS Safety Report 7200378-X (Version None)
Quarter: 2010Q4

REPORT INFORMATION
  Report Type: 
  Country: None (occurrence: None)
  Receive Date: 20101228
  Receipt Date: 20101221
  Transmission Date: 20110411
  Serious: Yes (Death)
  Sender: FDA-Public Use
  Company Number: JP-BAYER-201012422BYL

PATIENT
  Sex: Male
  Weight: 48 kg

DRUGS (11)
  1. NEXAVAR [Suspect]
     Indication: HEPATIC NEOPLASM MALIGNANT
     Dosage: 400 MG, BID
     Route: 048
     Dates: start: 20100402, end: 20100423
  2. NEXAVAR [Suspect]
     Dosage: 400 MG, BID
     Route: 048
     Dates: start: 20100428, end: 20100502
  3. NEXAVAR [Suspect]
  4. MS CONTIN [Concomitant]
     Dosage: DAILY DOSE 20 MG
     Route: 048
     Dates: start: 20100421, end: 20100429
  5. MS CONTIN [Concomitant]
     Dosage: DAILY DOSE 30 MG
     Route: 048
     Dates: start: 20100430, end: 20100503
  6. OPSO [Concomitant]
     Dosage: DAILY DOSE 5 MG
     Route: 048
     Dates: start: 20100421, end: 20100503
  7. MAGLAX [Concomitant]
     Dosage: DAILY DOSE 990 MG
     Route: 048
     Dates: start: 20100421, end: 20100503
  8. NOVAMIN [Concomitant]
     Dosage: DAILY DOSE 15 MG
     Route: 048
     Dates: start: 20100421, end: 20100503
  9. MYSLEE [Concomitant]
     Dosage: DAILY DOSE 10 MG
     Route: 048
     Dates: start: 20100421, end: 20100430
  10. SENNOSIDE [Concomitant]
     Dosage: DAILY DOSE 24 MG
     Route: 048
     Dates: start: 20100424, end: 20100429
  11. PORTOLAC [Concomitant]
     Dosage: DAILY DOSE 6 G
     Route: 048
     Dates: start: 20100425, end: 20100501

REACTIONS (1)
  - HEPATORENAL SYNDROME [None]
